FAERS Safety Report 5410354-5 (Version None)
Quarter: 2007Q3

REPORT INFORMATION
  Report Type: 
  Country: None (occurrence: None)
  Receive Date: 20070808
  Receipt Date: 20070730
  Transmission Date: 20080115
  Serious: Yes (Death)
  Sender: FDA-Public Use
  Company Number: FABR-12052

PATIENT
  Age: 58 Year
  Sex: Male
  Weight: 63 kg

DRUGS (3)
  1. FABRAZYME [Suspect]
     Indication: FABRY'S DISEASE
     Dosage: 70 MG Q2WKS IV
     Route: 042
     Dates: start: 20010622, end: 20050101
  2. FABRAZYME [Suspect]
     Indication: FABRY'S DISEASE
     Dosage: 35 MG QWK IV
     Route: 042
     Dates: start: 20050101
  3. FABRAZYME [Suspect]
     Indication: FABRY'S DISEASE
     Dosage: 1 MG/KG Q2WKS IV
     Route: 042
     Dates: end: 20070501

REACTIONS (5)
  - ARRHYTHMIA [None]
  - CORONARY ARTERY DISEASE [None]
  - OSTEONECROSIS [None]
  - RENAL FAILURE CHRONIC [None]
  - RENAL TRANSPLANT [None]
